FAERS Safety Report 12234855 (Version 1)
Quarter: 2016Q2

REPORT INFORMATION
  Report Type: Spontaneous
  Country: US (occurrence: US)
  Receive Date: 20160404
  Receipt Date: 20160404
  Transmission Date: 20160815
  Serious: Yes (Hospitalization)
  Sender: FDA-Public Use
  Company Number: US-TEVA-552435USA

PATIENT
  Age: 85 Year
  Sex: Female
  Weight: 61 kg

DRUGS (5)
  1. METFORMIN [Suspect]
     Active Substance: METFORMIN HYDROCHLORIDE
     Dosage: 1000 MILLIGRAM DAILY;
     Route: 065
  2. WARFARIN [Suspect]
     Active Substance: WARFARIN
     Dosage: 1 MILLIGRAM DAILY;
     Route: 065
  3. CARTIA XT [Suspect]
     Active Substance: DILTIAZEM HYDROCHLORIDE
     Route: 065
  4. METOPROLOL. [Suspect]
     Active Substance: METOPROLOL
     Dosage: 50 MILLIGRAM DAILY;
     Route: 065
  5. REVATIO [Suspect]
     Active Substance: SILDENAFIL CITRATE
     Indication: HEART RATE IRREGULAR
     Dosage: 20 MILLIGRAM DAILY;
     Route: 065

REACTIONS (2)
  - Drug dose omission [Unknown]
  - Dizziness [Recovered/Resolved]

NARRATIVE: CASE EVENT DATE: 20150323
